FAERS Safety Report 4954500-6 (Version None)
Quarter: 2006Q1

REPORT INFORMATION
  Report Type: 
  Country: None (occurrence: None)
  Receive Date: 20060321
  Receipt Date: 20060310
  Transmission Date: 20060701
  Serious: Yes (Hospitalization)
  Sender: FDA-Public Use
  Company Number: 06H-056-0304890-00

PATIENT
  Sex: Male
  Weight: 75 kg

DRUGS (6)
  1. PENTOTHAL [Suspect]
     Indication: EPILEPSY
     Dosage: SEE IMAGE
     Route: 042
     Dates: start: 20060122, end: 20060211
  2. PENTOTHAL [Suspect]
     Indication: EPILEPSY
     Dosage: SEE IMAGE
     Route: 042
     Dates: start: 20060211, end: 20060212
  3. PENTOTHAL [Suspect]
     Indication: EPILEPSY
     Dosage: SEE IMAGE
     Route: 042
     Dates: start: 20060212, end: 20060213
  4. PENTOTHAL [Suspect]
     Indication: EPILEPSY
     Dosage: SEE IMAGE
     Route: 042
     Dates: start: 20060213, end: 20060214
  5. AMOXICILLIN [Suspect]
  6. CLAVULANIC ACID (CLAVULANIC ACID) [Suspect]

REACTIONS (2)
  - PULMONARY OEDEMA [None]
  - WRONG TECHNIQUE IN DRUG USAGE PROCESS [None]
